FAERS Safety Report 16468088 (Version 2)
Quarter: 2019Q2

REPORT INFORMATION
  Report Type: Spontaneous
  Country: HK (occurrence: HK)
  Receive Date: 20190624
  Receipt Date: 20190630
  Transmission Date: 20190711
  Serious: Yes (Other)
  Sender: FDA-Public Use
  Company Number: HK-ROCHE-2340301

PATIENT
  Age: 75 Year
  Sex: Male

DRUGS (14)
  1. RITUXIMAB. [Suspect]
     Active Substance: RITUXIMAB
     Indication: DIFFUSE LARGE B-CELL LYMPHOMA
     Dosage: DAY 0
     Route: 065
     Dates: start: 201707, end: 201802
  2. DEXAMETHASONE. [Suspect]
     Active Substance: DEXAMETHASONE
     Dosage: DAY 1-4
     Route: 065
     Dates: start: 201807, end: 201808
  3. ETOPOSIDE. [Suspect]
     Active Substance: ETOPOSIDE
     Indication: DIFFUSE LARGE B-CELL LYMPHOMA
     Dosage: DAY 2-4
     Route: 065
     Dates: start: 201707, end: 201802
  4. CISPLATIN. [Suspect]
     Active Substance: CISPLATIN
     Indication: DIFFUSE LARGE B-CELL LYMPHOMA
     Dosage: DAY 1
     Route: 065
     Dates: start: 201807, end: 201808
  5. DEXAMETHASONE. [Suspect]
     Active Substance: DEXAMETHASONE
     Indication: DIFFUSE LARGE B-CELL LYMPHOMA
     Dosage: DAY 2- 4
     Route: 065
     Dates: start: 201707, end: 201802
  6. DEXAMETHASONE. [Suspect]
     Active Substance: DEXAMETHASONE
     Dosage: DAY 1-4
     Route: 065
     Dates: start: 201806
  7. IFOSFAMIDE. [Suspect]
     Active Substance: IFOSFAMIDE
     Indication: DIFFUSE LARGE B-CELL LYMPHOMA
     Dosage: DAY 2- 4
     Route: 065
     Dates: start: 201707, end: 201802
  8. RITUXIMAB. [Suspect]
     Active Substance: RITUXIMAB
     Dosage: DAY 0
     Route: 065
     Dates: start: 201806
  9. RITUXIMAB. [Suspect]
     Active Substance: RITUXIMAB
     Route: 065
     Dates: start: 201807, end: 201808
  10. METHOTREXATE. [Suspect]
     Active Substance: METHOTREXATE
     Indication: DIFFUSE LARGE B-CELL LYMPHOMA
     Dosage: DAY 1
     Route: 065
     Dates: start: 201707, end: 201802
  11. L-ASPARAGINASE [Suspect]
     Active Substance: ASPARAGINASE
     Indication: DIFFUSE LARGE B-CELL LYMPHOMA
     Route: 065
     Dates: start: 201707, end: 201802
  12. CYTARABINE. [Suspect]
     Active Substance: CYTARABINE
     Indication: DIFFUSE LARGE B-CELL LYMPHOMA
     Dosage: DAY 2 ( 2 DOSES)
     Route: 065
     Dates: start: 201806
  13. CISPLATIN. [Suspect]
     Active Substance: CISPLATIN
     Dosage: DAY 1
     Route: 065
     Dates: start: 201806
  14. GEMCITABINE [Suspect]
     Active Substance: GEMCITABINE\GEMCITABINE HYDROCHLORIDE
     Indication: DIFFUSE LARGE B-CELL LYMPHOMA
     Dosage: DAY 1 AND DAY 8
     Route: 065
     Dates: start: 201807, end: 201808

REACTIONS (2)
  - Diffuse large B-cell lymphoma recurrent [Unknown]
  - Pyrexia [Unknown]
